FAERS Safety Report 18585437 (Version 1)
Quarter: 2020Q4

REPORT INFORMATION
  Report Type: Spontaneous
  Country: ES (occurrence: ES)
  Receive Date: 20201207
  Receipt Date: 20201207
  Transmission Date: 20210114
  Serious: Yes (Other)
  Sender: FDA-Public Use
  Company Number: ES-MYLANLABS-2020M1098590

PATIENT
  Age: 24 Year
  Sex: Male

DRUGS (2)
  1. COCAINE [Concomitant]
     Active Substance: COCAINE
     Indication: PRODUCT USED FOR UNKNOWN INDICATION
     Dosage: UNK
  2. LEVETIRACETAM. [Suspect]
     Active Substance: LEVETIRACETAM
     Indication: EPILEPSY
     Dosage: UNK

REACTIONS (6)
  - Aggression [Unknown]
  - Seizure [Unknown]
  - Product dose omission issue [Unknown]
  - Behaviour disorder [Unknown]
  - Irritability [Unknown]
  - Sleep deficit [Unknown]
